FAERS Safety Report 6091521-7 (Version None)
Quarter: 2009Q1

REPORT INFORMATION
  Report Type: 
  Country: None (occurrence: None)
  Receive Date: 20090225
  Receipt Date: 20090213
  Transmission Date: 20090719
  Serious: Yes (Hospitalization, Other)
  Sender: FDA-Public Use
  Company Number: PHBS2009AU00860

PATIENT
  Age: 55 Year
  Sex: Male

DRUGS (4)
  1. IMATINIB MESYLATE [Suspect]
     Indication: CHRONIC MYELOID LEUKAEMIA
  2. PREDNISONE [Suspect]
     Dosage: 50 MG/DAY
  3. PREDNISONE [Suspect]
     Dosage: 12.5 MG/DAY
  4. PREDNISONE [Suspect]
     Dosage: 100 MG/DAY

REACTIONS (12)
  - CONDITION AGGRAVATED [None]
  - DIABETES MELLITUS [None]
  - FALL [None]
  - FIBROSIS [None]
  - INFLAMMATION [None]
  - MALAISE [None]
  - OEDEMA PERIPHERAL [None]
  - PYODERMA GANGRENOSUM [None]
  - PYREXIA [None]
  - RIB FRACTURE [None]
  - SEPSIS [None]
  - SKIN ULCER [None]
